FAERS Safety Report 24046685 (Version 1)
Quarter: 2024Q3

REPORT INFORMATION
  Report Type: Spontaneous
  Country: PL (occurrence: PL)
  Receive Date: 20240703
  Receipt Date: 20240703
  Transmission Date: 20241017
  Serious: Yes (Hospitalization, Other)
  Sender: FRESENIUS KABI
  Company Number: PL-BRISTOL-MYERS SQUIBB COMPANY-2024-095307

PATIENT
  Age: 70 Year
  Sex: Female
  Weight: 108 kg

DRUGS (9)
  1. FUROSEMIDE [Suspect]
     Active Substance: FUROSEMIDE
     Indication: Product used for unknown indication
     Dosage: FORM OF ADMIN: UNKNOWN ?ROUTE OF ADMIN: UNKNOWN
  2. CALCIUM CHLORIDE\MAGNESIUM CHLORIDE\POTASSIUM CHLORIDE\SODIUM ACETATE\ [Suspect]
     Active Substance: CALCIUM CHLORIDE\MAGNESIUM CHLORIDE\POTASSIUM CHLORIDE\SODIUM ACETATE\SODIUM CHLORIDE\SODIUM CITRATE
     Indication: Product used for unknown indication
     Dosage: FOA: UNKNOWN?ROA: UNKNOWN
  3. SPIRONOLACTONE [Suspect]
     Active Substance: SPIRONOLACTONE
     Indication: Product used for unknown indication
     Dosage: FOA: UNKNOWN ?ROA: UNKNOWN
  4. ZILTIVEKIMAB [Suspect]
     Active Substance: ZILTIVEKIMAB
     Indication: Cardiac failure
     Dosage: FOA: UNKNOWN ?ROA: UNKNOWN
     Dates: start: 20230719, end: 20230719
  5. ESTAZOLAM [Suspect]
     Active Substance: ESTAZOLAM
     Indication: Product used for unknown indication
     Dosage: FOA: UNKNOWN ?ROA: UNKNOWN
  6. ELIQUIS [Suspect]
     Active Substance: APIXABAN
     Indication: Product used for unknown indication
     Dosage: FOA: UNKNOWN ?ROA: UNKNOWN
  7. DAPAGLIFLOZIN [Suspect]
     Active Substance: DAPAGLIFLOZIN
     Indication: Product used for unknown indication
     Dosage: FOA: UNKNOWN?ROA: UNKNOWN
     Dates: end: 20240310
  8. OMEPRAZOLE [Suspect]
     Active Substance: OMEPRAZOLE
     Indication: Product used for unknown indication
     Dosage: 40?FOA: UNKNOWN?ROA: UNKNOWN
  9. BIBLOC [BISOPROLOL FUMARATE] [Concomitant]
     Indication: Product used for unknown indication
     Dosage: FOA: UNKNOWN ?ROA: UNKNOWN

REACTIONS (2)
  - Cardiac failure [Recovered/Resolved]
  - Asthenia [Unknown]

NARRATIVE: CASE EVENT DATE: 20230726
